FAERS Safety Report 8409997-6 (Version None)
Quarter: 2012Q2

REPORT INFORMATION
  Report Type: 
  Country: None (occurrence: None)
  Receive Date: 20120605
  Receipt Date: 20120529
  Transmission Date: 20120825
  Serious: Yes (Hospitalization)
  Sender: FDA-Public Use
  Company Number: US-BAYER-2011-108119

PATIENT
  Age: 24 Year
  Sex: Female
  Weight: 63.492 kg

DRUGS (1)
  1. DROSPIRENONE AND ETHINYL ESTRADIOL [Suspect]
     Indication: OVARIAN CYST
     Dosage: UNK
     Dates: start: 20081001, end: 20101101

REACTIONS (7)
  - CHOLECYSTITIS CHRONIC [None]
  - BILIARY DYSKINESIA [None]
  - GENERAL PHYSICAL HEALTH DETERIORATION [None]
  - ANXIETY [None]
  - BILIARY COLIC [None]
  - EMOTIONAL DISTRESS [None]
  - ABDOMINAL PAIN UPPER [None]
